FAERS Safety Report 25373581 (Version 1)
Quarter: 2025Q2

REPORT INFORMATION
  Report Type: Report from Study
  Country: US (occurrence: US)
  Receive Date: 20250529
  Receipt Date: 20250529
  Transmission Date: 20250716
  Serious: Yes (Other)
  Sender: AMGEN
  Company Number: US-AMGEN-USASL2025101780

PATIENT
  Age: 43 Year
  Sex: Female

DRUGS (2)
  1. OTEZLA [Suspect]
     Active Substance: APREMILAST
     Indication: Psoriasis
     Route: 065
     Dates: start: 2021, end: 2022
  2. OTEZLA [Suspect]
     Active Substance: APREMILAST
     Route: 065
     Dates: start: 20250514

REACTIONS (4)
  - Sinusitis [Recovering/Resolving]
  - Mucosal dryness [Recovering/Resolving]
  - Epistaxis [Recovered/Resolved]
  - Therapy interrupted [Unknown]

NARRATIVE: CASE EVENT DATE: 20250501
